FAERS Safety Report 5875838-4 (Version None)
Quarter: 2008Q3

REPORT INFORMATION
  Report Type: 
  Country: None (occurrence: None)
  Receive Date: 20080909
  Receipt Date: 20080828
  Transmission Date: 20090109
  Serious: Yes (Other)
  Sender: FDA-Public Use
  Company Number: US-PFIZER INC-2008072509

PATIENT
  Sex: Female
  Weight: 74.545 kg

DRUGS (8)
  1. XANAX [Suspect]
     Dosage: TEXT:5MG-FREQ:DAILY
     Dates: start: 20050101
  2. CELEBREX [Suspect]
     Indication: ARTHRALGIA
     Route: 048
     Dates: start: 20050101, end: 20080828
  3. LYRICA [Suspect]
     Dosage: TEXT:50MG
  4. HYDROCODONE BITARTRATE [Suspect]
  5. HYTRIN [Concomitant]
  6. SEROQUEL [Concomitant]
     Dosage: TEXT:5MG
  7. FLORASTOR [Concomitant]
  8. FLORA-Q [Concomitant]

REACTIONS (5)
  - BLOOD IRON DECREASED [None]
  - COELIAC DISEASE [None]
  - DIARRHOEA [None]
  - JOINT SURGERY [None]
  - RED BLOOD CELL COUNT DECREASED [None]
